FAERS Safety Report 5117732-2 (Version None)
Quarter: 2006Q3

REPORT INFORMATION
  Report Type: 
  Country: None (occurrence: None)
  Receive Date: 20060926
  Receipt Date: 20060911
  Transmission Date: 20061208
  Serious: Yes (Hospitalization)
  Sender: FDA-Public Use
  Company Number: FR200608006745

PATIENT
  Age: 65 Year
  Sex: Female
  Weight: 80 kg

DRUGS (6)
  1. ZYPREXA [Suspect]
     Indication: BIPOLAR DISORDER
     Dosage: 10 MG, DAILY (1/D), ORAL
     Route: 048
  2. VALPROATE SODIUM [Concomitant]
  3. TERCIAN (CYAMEMAZINE) [Concomitant]
  4. DEROXAT /SCH/ (PAROXETINE HYDROCHLORIDE) [Concomitant]
  5. CORTANCYL  /FRA/ (PREDNISONE) [Concomitant]
  6. ESIDEX  /NET/ (HYDROCHLOROTHIAZIDE) [Concomitant]

REACTIONS (2)
  - DRUG INTERACTION [None]
  - WEIGHT INCREASED [None]
